FAERS Safety Report 10362419 (Version 1)
Quarter: 2014Q1

REPORT INFORMATION
  Report Type: Spontaneous
  Country: US (occurrence: None)
  Receive Date: 20140306
  Receipt Date: 20140306
  Transmission Date: 20141002
  Serious: Yes (Other)
  Sender: FDA-Public Use
  Company Number: 163-21880-13061212

PATIENT
  Age: 78 Year
  Sex: Male

DRUGS (8)
  1. REVLIMID (LENALIDOMIDE) (25 MILLIGRAM, CAPSULES) [Suspect]
     Indication: PLASMA CELL MYELOMA
     Dosage: 25 MG, 14 IN 21 D, PO
     Route: 048
     Dates: start: 20121017, end: 2012
  2. WARFARIN (WARFARIN) [Concomitant]
  3. DECADRON (DEXAMETHASONE) [Concomitant]
  4. VELCADE (BORTEZOMIB) [Concomitant]
  5. ALLOPURINOL (ALLOPURINOL) [Concomitant]
  6. BACTRIM (BACTRIM) [Concomitant]
  7. ASA (ACETYLSALICYLIC ACID) [Concomitant]
  8. BLOOD (BLOOD AND RELATED PRODUCTS) [Concomitant]

REACTIONS (1)
  - Platelet count decreased [None]
